FAERS Safety Report 5697392-2 (Version None)
Quarter: 2008Q2

REPORT INFORMATION
  Report Type: 
  Country: None (occurrence: None)
  Receive Date: 20080407
  Receipt Date: 20080331
  Transmission Date: 20081010
  Serious: Yes (Other)
  Sender: FDA-Public Use
  Company Number: PHNU2008DE01424

PATIENT
  Sex: Male

DRUGS (3)
  1. ACETYLCYSTEINE [Concomitant]
  2. CAMPRAL [Concomitant]
  3. LAMISIL [Suspect]
     Indication: ONYCHOMYCOSIS
     Dosage: 250 MG DAILY
     Route: 048
     Dates: start: 20080327, end: 20080331

REACTIONS (3)
  - ALCOHOL WITHDRAWAL SYNDROME [None]
  - MUSCLE SPASMS [None]
  - TREMOR [None]
